FAERS Safety Report 10588234 (Version 3)
Quarter: 2016Q1

REPORT INFORMATION
  Report Type: Spontaneous
  Country: JP (occurrence: JP)
  Receive Date: 20141117
  Receipt Date: 20160203
  Transmission Date: 20160525
  Serious: Yes (Other)
  Sender: FDA-Public Use
  Company Number: JP-BRISTOL-MYERS SQUIBB COMPANY-21595327

PATIENT
  Age: 38 Year
  Sex: Female

DRUGS (5)
  1. ABILIFY [Suspect]
     Active Substance: ARIPIPRAZOLE
     Indication: SCHIZOPHRENIA
     Dosage: 12 MG, QD
     Route: 048
     Dates: start: 20140814
  2. MEILAX [Concomitant]
     Active Substance: ETHYL LOFLAZEPATE
     Route: 065
  3. HALOMONTH [Concomitant]
     Active Substance: HALOPERIDOL DECANOATE
     Route: 065
  4. HALCION [Concomitant]
     Active Substance: TRIAZOLAM
     Route: 065
  5. MYSLEE [Concomitant]
     Active Substance: ZOLPIDEM TARTRATE
     Route: 065

REACTIONS (3)
  - Abortion [Recovered/Resolved]
  - Maternal exposure during pregnancy [Recovered/Resolved]
  - Off label use [Unknown]

NARRATIVE: CASE EVENT DATE: 201409
